FAERS Safety Report 11749096 (Version 1)
Quarter: 2015Q4

REPORT INFORMATION
  Report Type: Spontaneous
  Country: US (occurrence: None)
  Receive Date: 20151117
  Receipt Date: 20151117
  Transmission Date: 20160304
  Serious: Yes (Disabling)
  Sender: FDA-Public Use
  Company Number: None

PATIENT
  Age: 29 Month
  Sex: Male
  Weight: 15.42 kg

DRUGS (1)
  1. MIRALAX [Suspect]
     Active Substance: POLYETHYLENE GLYCOL 3350
     Indication: CONSTIPATION
     Route: 048
     Dates: start: 20150506, end: 20150901

REACTIONS (4)
  - Drug ineffective [None]
  - Aggression [None]
  - Excessive eye blinking [None]
  - Abnormal behaviour [None]

NARRATIVE: CASE EVENT DATE: 20150506
